FAERS Safety Report 23252375 (Version 1)
Quarter: 2023Q4

REPORT INFORMATION
  Report Type: Spontaneous
  Country: US (occurrence: None)
  Receive Date: 20231130
  Receipt Date: 20231130
  Transmission Date: 20240110
  Serious: Yes (Hospitalization)
  Sender: FDA-Public Use
  Company Number: None

PATIENT
  Age: 54 Year
  Sex: Male

DRUGS (6)
  1. ISENTRESS [Suspect]
     Active Substance: RALTEGRAVIR POTASSIUM
     Indication: HIV infection
     Dosage: 400MG TWICE DAILY ORAL?
     Route: 048
     Dates: start: 202303
  2. SELZENTRY [Suspect]
     Active Substance: MARAVIROC
     Indication: HIV infection
     Dosage: 150MG TWICE DAILY ORAL
     Route: 048
     Dates: start: 202303
  3. DARUNAVIR [Concomitant]
  4. HEMLIBRA SDV [Concomitant]
  5. XYNTHA SOLOF INJ [Concomitant]
  6. RITONAVIR [Concomitant]

REACTIONS (3)
  - Pancreatitis [None]
  - Fall [None]
  - Skin haemorrhage [None]

NARRATIVE: CASE EVENT DATE: 20231113
